FAERS Safety Report 7434212-X (Version None)
Quarter: 2011Q2

REPORT INFORMATION
  Report Type: 
  Country: None (occurrence: None)
  Receive Date: 20110415
  Receipt Date: 20110408
  Transmission Date: 20111010
  Serious: Yes (Other)
  Sender: FDA-Public Use
  Company Number: JHP201100096

PATIENT
  Age: 76 Year
  Sex: Male

DRUGS (6)
  1. ALCOHOL (ETHANOL) [Suspect]
     Indication: HAEMOSTASIS
     Dosage: 0.5 ML, INJECTION
  2. ALCOHOL (ETHANOL) [Suspect]
     Indication: PEPTIC ULCER HAEMORRHAGE
     Dosage: 0.5 ML, INJECTION
  3. ACETYLSALICYLIC ACID (ACETYLSALICYLIC ACID) [Concomitant]
  4. CLOPIDOGREL [Concomitant]
  5. EPINEPHRINE [Suspect]
     Indication: HAEMOSTASIS
     Dosage: 4 ML OF DILUTED EPINEPHRINE (1:10 000), INJECTION
  6. EPINEPHRINE [Suspect]
     Indication: PEPTIC ULCER HAEMORRHAGE
     Dosage: 4 ML OF DILUTED EPINEPHRINE (1:10 000), INJECTION

REACTIONS (1)
  - POST PROCEDURAL HAEMATOMA [None]
